FAERS Safety Report 6633376-5 (Version None)
Quarter: 2010Q1

REPORT INFORMATION
  Report Type: 
  Country: None (occurrence: None)
  Receive Date: 20100312
  Receipt Date: 20100302
  Transmission Date: 20100710
  Serious: Yes (Other)
  Sender: FDA-Public Use
  Company Number: BR-PFIZER INC-2010026811

PATIENT
  Sex: Female

DRUGS (2)
  1. NEURONTIN [Suspect]
     Indication: FIBROMYALGIA
     Dosage: 300 MG, 3X/DAY (1 CAPSULE EVERY 8 HOURS)
     Route: 048
     Dates: start: 20100101, end: 20100101
  2. MARCUMAR [Interacting]
     Indication: VENOUS THROMBOSIS
     Dosage: 6 MG, 1X/DAY (2 TABLETS OF 3MG IN THE AFTERNOON)
     Route: 048
     Dates: start: 20080101

REACTIONS (2)
  - DRUG INTERACTION [None]
  - PROTHROMBIN LEVEL DECREASED [None]
